FAERS Safety Report 13579557 (Version 2)
Quarter: 2017Q4

REPORT INFORMATION
  Report Type: Report from Study
  Country: None (occurrence: US)
  Receive Date: 20170525
  Receipt Date: 20171106
  Transmission Date: 20180320
  Serious: Yes (Other)
  Sender: FDA-Public Use
  Company Number: US-ABBVIE-17K-163-1986924-00

PATIENT
  Sex: Female

DRUGS (3)
  1. XELJANZ [Suspect]
     Active Substance: TOFACITINIB CITRATE
     Indication: PRODUCT USED FOR UNKNOWN INDICATION
     Route: 065
     Dates: start: 2016
  2. HUMIRA [Suspect]
     Active Substance: ADALIMUMAB
     Indication: RHEUMATOID ARTHRITIS
     Route: 058
     Dates: start: 2016, end: 2016
  3. HUMIRA [Suspect]
     Active Substance: ADALIMUMAB
     Route: 058
     Dates: start: 20170628

REACTIONS (12)
  - Osteoarthritis [Not Recovered/Not Resolved]
  - Drug effect incomplete [Not Recovered/Not Resolved]
  - Arthralgia [Unknown]
  - Musculoskeletal pain [Unknown]
  - Abdominal pain [Unknown]
  - Bursa disorder [Unknown]
  - Headache [Unknown]
  - Pain in extremity [Unknown]
  - Faeces discoloured [Unknown]
  - Joint stiffness [Unknown]
  - Tooth infection [Unknown]
  - Synovitis [Unknown]

NARRATIVE: CASE EVENT DATE: 2016
